FAERS Safety Report 5509599-5 (Version None)
Quarter: 2007Q4

REPORT INFORMATION
  Report Type: 
  Country: None (occurrence: None)
  Receive Date: 20071108
  Receipt Date: 20071102
  Transmission Date: 20080405
  Serious: Yes (Hospitalization)
  Sender: FDA-Public Use
  Company Number: FR-RB-008476-07

PATIENT
  Age: 28 Year
  Sex: Male

DRUGS (1)
  1. SUBUTEX [Suspect]
     Indication: DRUG USE FOR UNKNOWN INDICATION
     Route: 065

REACTIONS (6)
  - ANXIETY [None]
  - DRUG WITHDRAWAL SYNDROME [None]
  - HOSPITALISATION [None]
  - INCORRECT ROUTE OF DRUG ADMINISTRATION [None]
  - INJECTION SITE ABSCESS [None]
  - LIVER DISORDER [None]
